FAERS Safety Report 4986898-7 (Version None)
Quarter: 2006Q2

REPORT INFORMATION
  Report Type: 
  Country: None (occurrence: None)
  Receive Date: 20060501
  Receipt Date: 20060419
  Transmission Date: 20061013
  Serious: Yes (Other)
  Sender: FDA-Public Use
  Company Number: PHEH2006US05252

PATIENT

DRUGS (2)
  1. AREDIA [Suspect]
     Dosage: 90 MG, UNK
  2. ZOMETA [Suspect]
     Dosage: 4 MG, UNK

REACTIONS (1)
  - OSTEONECROSIS [None]
